FAERS Safety Report 24611234 (Version 2)
Quarter: 2025Q3

REPORT INFORMATION
  Report Type: Report from Study
  Country: JP (occurrence: JP)
  Receive Date: 20241113
  Receipt Date: 20250803
  Transmission Date: 20251020
  Serious: Yes (Other)
  Sender: ALEXION PHARMACEUTICALS
  Company Number: JP-ASTRAZENECA-230049381_011820_P_1

PATIENT
  Age: 16 Year
  Sex: Male
  Weight: 43 kg

DRUGS (22)
  1. KOSELUGO [Suspect]
     Active Substance: SELUMETINIB
     Indication: Neurofibroma
     Dosage: 30 MILLIGRAM, BID
     Dates: start: 20221226
  2. LOXOPROFEN SODIUM [Concomitant]
     Active Substance: LOXOPROFEN SODIUM
     Indication: Pain
  3. ABILIFY [Concomitant]
     Active Substance: ARIPIPRAZOLE
     Indication: Autism spectrum disorder
  4. INTUNIV [Concomitant]
     Active Substance: GUANFACINE HYDROCHLORIDE
     Indication: Autism spectrum disorder
  5. Melatobel [Concomitant]
     Indication: Sleep disorder
  6. SINGULAIR [Concomitant]
     Active Substance: MONTELUKAST SODIUM
     Indication: Asthma
  7. AMBROXOL HYDROCHLORIDE [Concomitant]
     Active Substance: AMBROXOL HYDROCHLORIDE
     Indication: Asthma
     Route: 065
  8. CARBOCYSTEINE [Concomitant]
     Active Substance: CARBOCYSTEINE
     Indication: Asthma
  9. TEPRENONE [Concomitant]
     Active Substance: TEPRENONE
     Indication: Glomerulonephritis chronic
  10. TEPRENONE [Concomitant]
     Active Substance: TEPRENONE
     Indication: Chronic gastritis
  11. Dermosol g [Concomitant]
     Indication: Eczema
  12. Dermosol g [Concomitant]
     Indication: Dermatitis
  13. Dermosol g [Concomitant]
     Indication: Impetigo
  14. GLYCOSAMINOGLYCANS [Concomitant]
     Active Substance: GLYCOSAMINOGLYCANS
     Indication: Eczema
  15. GLYCOSAMINOGLYCANS [Concomitant]
     Active Substance: GLYCOSAMINOGLYCANS
     Indication: Dermatitis
  16. GLYCOSAMINOGLYCANS [Concomitant]
     Active Substance: GLYCOSAMINOGLYCANS
     Indication: Impetigo
  17. Azunol [Concomitant]
     Indication: Eczema
  18. Azunol [Concomitant]
     Indication: Dermatitis
  19. Azunol [Concomitant]
     Indication: Impetigo
  20. NADIFLOXACIN [Concomitant]
     Active Substance: NADIFLOXACIN
     Indication: Eczema
  21. NADIFLOXACIN [Concomitant]
     Active Substance: NADIFLOXACIN
     Indication: Dermatitis
  22. NADIFLOXACIN [Concomitant]
     Active Substance: NADIFLOXACIN
     Indication: Impetigo

REACTIONS (2)
  - Fall [Recovered/Resolved]
  - Humerus fracture [Recovering/Resolving]

NARRATIVE: CASE EVENT DATE: 20230706
